FAERS Safety Report 10913879 (Version 1)
Quarter: 2015Q1

REPORT INFORMATION
  Report Type: Spontaneous
  Country: US (occurrence: US)
  Receive Date: 20150313
  Receipt Date: 20150313
  Transmission Date: 20150721
  Serious: Yes (Hospitalization)
  Sender: FDA-Public Use
  Company Number: US-BAYER-2015-034568

PATIENT
  Sex: Female

DRUGS (1)
  1. MIRENA [Suspect]
     Active Substance: LEVONORGESTREL
     Indication: CONTRACEPTION
     Dosage: 20 MCG/24HR, CONT
     Route: 015

REACTIONS (8)
  - Pain [None]
  - Impaired work ability [None]
  - Ruptured ectopic pregnancy [None]
  - Ectopic pregnancy [None]
  - Drug ineffective [None]
  - Malaise [None]
  - Dysstasia [None]
  - Abasia [None]
